FAERS Safety Report 8184710-9 (Version None)
Quarter: 2012Q1

REPORT INFORMATION
  Report Type: 
  Country: None (occurrence: None)
  Receive Date: 20120305
  Receipt Date: 20120305
  Transmission Date: 20120608
  Serious: Yes (Other)
  Sender: FDA-Public Use
  Company Number: None

PATIENT
  Age: 34 Year
  Sex: Male
  Weight: 86.182 kg

DRUGS (2)
  1. PAROXETINE [Suspect]
     Indication: ANXIETY
     Dosage: ONE TABLET
     Route: 048
     Dates: start: 20111204, end: 20120302
  2. PAROXETINE [Suspect]
     Indication: DEPRESSION
     Dosage: ONE TABLET
     Route: 048
     Dates: start: 20111204, end: 20120302

REACTIONS (2)
  - DRUG WITHDRAWAL SYNDROME [None]
  - MALAISE [None]
